FAERS Safety Report 8517144-5 (Version None)
Quarter: 2012Q3

REPORT INFORMATION
  Report Type: 
  Country: None (occurrence: None)
  Receive Date: 20120706
  Receipt Date: 20120619
  Transmission Date: 20120928
  Serious: Yes (Disabling)
  Sender: FDA-Public Use
  Company Number: US-SEPTODONT-201200676

PATIENT
  Sex: Female

DRUGS (2)
  1. CITANEST [Suspect]
     Dates: start: 20120610, end: 20120610
  2. SEPTOCAINE [Suspect]
     Indication: LOCAL ANAESTHESIA
     Dates: start: 20120610, end: 20120610

REACTIONS (2)
  - SENSORY LOSS [None]
  - NERVE INJURY [None]
